FAERS Safety Report 11128811 (Version 1)
Quarter: 2015Q2

REPORT INFORMATION
  Report Type: Spontaneous
  Country: JP (occurrence: JP)
  Receive Date: 20150521
  Receipt Date: 20150521
  Transmission Date: 20150821
  Serious: Yes (Other)
  Sender: FDA-Public Use
  Company Number: JP-GLAXOSMITHKLINE-JP2015068731

PATIENT
  Age: 59 Year
  Sex: Female

DRUGS (1)
  1. NICORETTE [Suspect]
     Active Substance: NICOTINE
     Indication: SMOKING CESSATION THERAPY
     Route: 048

REACTIONS (5)
  - Dyspnoea [Recovered/Resolved]
  - Pelvic pain [Recovered/Resolved]
  - Muscle spasms [Recovered/Resolved]
  - Overdose [Unknown]
  - Back pain [Recovering/Resolving]
